FAERS Safety Report 10812143 (Version 2)
Quarter: 2015Q1

REPORT INFORMATION
  Report Type: Report from Study
  Country: CN (occurrence: None)
  Receive Date: 20150212
  Receipt Date: 20150327
  Transmission Date: 20150721
  Serious: Yes (Other)
  Sender: FDA-Public Use
  Company Number: 8008137

PATIENT
  Age: 45 Year
  Sex: Female

DRUGS (2)
  1. EUTHYROX 50 MCG [Suspect]
     Active Substance: LEVOTHYROXINE SODIUM
     Indication: HYPOTHYROIDISM
     Route: 048
     Dates: start: 20141211, end: 20150123
  2. AZITHROMYCIN [Concomitant]
     Active Substance: AZITHROMYCIN ANHYDROUS

REACTIONS (12)
  - Flushing [None]
  - Overdose [None]
  - Foaming at mouth [None]
  - Tongue discolouration [None]
  - Seizure [None]
  - Loss of consciousness [None]
  - Erythema [None]
  - Abdominal pain [None]
  - Pallor [None]
  - Pain in extremity [None]
  - Hypoaesthesia oral [None]
  - Parosmia [None]

NARRATIVE: CASE EVENT DATE: 20141211
